FAERS Safety Report 12886823 (Version 2)
Quarter: 2016Q4

REPORT INFORMATION
  Report Type: Spontaneous
  Country: FR (occurrence: FR)
  Receive Date: 20161026
  Receipt Date: 20161110
  Transmission Date: 20170207
  Serious: Yes (Other)
  Sender: FDA-Public Use
  Company Number: FR-BRISTOL-MYERS SQUIBB COMPANY-BMS-2016-086274

PATIENT
  Age: 72 Year
  Sex: Female

DRUGS (9)
  1. IMOVANE [Concomitant]
     Active Substance: ZOPICLONE
     Indication: PRODUCT USED FOR UNKNOWN INDICATION
     Route: 065
  2. COVERSYL                           /00790702/ [Concomitant]
     Active Substance: PERINDOPRIL
     Indication: PRODUCT USED FOR UNKNOWN INDICATION
     Route: 065
  3. COUMADINE [Suspect]
     Active Substance: WARFARIN SODIUM
     Indication: PRODUCT USED FOR UNKNOWN INDICATION
     Dosage: 3 MG, UNK
     Route: 048
     Dates: start: 20160927, end: 20160930
  4. KARDEGIC [Suspect]
     Active Substance: ASPIRIN LYSINE
     Indication: ISCHAEMIC STROKE
     Dosage: 1 DF, QD
     Route: 048
     Dates: start: 20160922, end: 20160923
  5. LOXEN                              /00639802/ [Concomitant]
     Active Substance: NICARDIPINE
     Indication: PRODUCT USED FOR UNKNOWN INDICATION
     Route: 065
  6. COUMADINE [Suspect]
     Active Substance: WARFARIN SODIUM
     Indication: ISCHAEMIC STROKE
     Dosage: 2 MG, QD
     Route: 048
     Dates: start: 20160923
  7. LOVENOX [Suspect]
     Active Substance: ENOXAPARIN SODIUM
     Indication: ISCHAEMIC STROKE
     Dosage: 1 DF, BID
     Route: 058
     Dates: start: 20160923, end: 20160930
  8. LEVOTHYROX [Concomitant]
     Active Substance: LEVOTHYROXINE
     Indication: PRODUCT USED FOR UNKNOWN INDICATION
     Route: 065
  9. TAHOR [Concomitant]
     Active Substance: ATORVASTATIN CALCIUM
     Indication: PRODUCT USED FOR UNKNOWN INDICATION
     Route: 065

REACTIONS (11)
  - Splenic infarction [Unknown]
  - Peritoneal haemorrhage [Unknown]
  - Loss of consciousness [Unknown]
  - Malaise [Recovering/Resolving]
  - Transfusion [Unknown]
  - Ascites [Recovering/Resolving]
  - International normalised ratio increased [Recovered/Resolved]
  - Renal infarct [Unknown]
  - Splenectomy [Unknown]
  - Intestinal infarction [Unknown]
  - Anaemia [Recovering/Resolving]

NARRATIVE: CASE EVENT DATE: 20160929
